FAERS Safety Report 9487012 (Version 1)
Quarter: 2013Q3

REPORT INFORMATION
  Report Type: Report from Study
  Country: JP (occurrence: JP)
  Receive Date: 20130829
  Receipt Date: 20130829
  Transmission Date: 20140515
  Serious: Yes (Death, Life-Threatening)
  Sender: FDA-Public Use
  Company Number: JP-GLAXOSMITHKLINE-B0917588A

PATIENT
  Age: 60 Year
  Sex: Male

DRUGS (13)
  1. SAMTIREL [Suspect]
     Indication: ANTIFUNGAL PROPHYLAXIS
     Dosage: 750MG TWICE PER DAY
     Route: 048
     Dates: start: 20120612, end: 20120922
  2. TRUVADA [Suspect]
     Indication: HIV INFECTION
     Dosage: 1IUAX PER DAY
     Route: 048
     Dates: start: 20120401, end: 20120922
  3. ISENTRESS [Suspect]
     Indication: HIV INFECTION
     Route: 048
     Dates: start: 20120401, end: 20120922
  4. ZITHROMAC [Concomitant]
     Indication: PROPHYLAXIS
     Route: 048
     Dates: start: 20120401, end: 20120509
  5. ITRIZOLE [Concomitant]
     Indication: BRONCHOPULMONARY ASPERGILLOSIS
     Dosage: 200MG PER DAY
     Route: 048
     Dates: start: 20120401, end: 20120410
  6. MIYA BM [Concomitant]
     Indication: DIARRHOEA
     Dosage: 2IUAX THREE TIMES PER DAY
     Route: 048
     Dates: start: 20120401, end: 20120522
  7. DESYREL [Concomitant]
     Indication: ANGER
     Dosage: 1IUAX PER DAY
     Route: 048
     Dates: start: 20120608, end: 20120922
  8. FUNGUARD [Concomitant]
     Indication: BRONCHOPULMONARY ASPERGILLOSIS
     Dosage: 100MG PER DAY
     Route: 042
     Dates: start: 20120806, end: 20120827
  9. ITRIZOLE [Concomitant]
     Indication: BRONCHOPULMONARY ASPERGILLOSIS
     Dosage: 400MG PER DAY
     Route: 042
     Dates: start: 20120828, end: 20120829
  10. ITRIZOLE [Concomitant]
     Indication: BRONCHOPULMONARY ASPERGILLOSIS
     Dosage: 200MG PER DAY
     Route: 042
     Dates: start: 20120830, end: 20120921
  11. UNASYN-S [Concomitant]
     Indication: PNEUMONIA
     Dosage: 3G THREE TIMES PER DAY
     Route: 042
     Dates: start: 20120919, end: 20120921
  12. MEROPEN [Concomitant]
     Indication: PNEUMONIA
     Dosage: .5G THREE TIMES PER DAY
     Route: 042
     Dates: start: 20120921, end: 20120923
  13. AMBISOME [Concomitant]
     Indication: BRONCHOPULMONARY ASPERGILLOSIS
     Dosage: 50MG THREE TIMES PER DAY
     Route: 042
     Dates: start: 20120922, end: 20120923

REACTIONS (4)
  - Bronchopulmonary aspergillosis [Fatal]
  - Blood lactate dehydrogenase increased [Fatal]
  - C-reactive protein increased [Fatal]
  - Platelet count decreased [Fatal]
